FAERS Safety Report 6366674-3 (Version None)
Quarter: 2009Q3

REPORT INFORMATION
  Report Type: 
  Country: None (occurrence: None)
  Receive Date: 20090921
  Receipt Date: 20090911
  Transmission Date: 20100115
  Serious: Yes (Death, Life-Threatening, Hospitalization)
  Sender: FDA-Public Use
  Company Number: FR-ABBOTT-09P-056-0597195-00

PATIENT
  Sex: Male

DRUGS (4)
  1. ENANTONE 11.25 MG [Suspect]
     Indication: PROSTATE CANCER
     Route: 030
     Dates: start: 20080601
  2. BICALUTAMIDE [Suspect]
     Indication: PROSTATE CANCER
     Route: 048
     Dates: start: 20060515, end: 20081018
  3. IRBESARTAN [Concomitant]
     Indication: HYPERTENSION
     Route: 048
  4. TAMSULOSIN HCL [Concomitant]
     Indication: PROSTATIC ADENOMA
     Route: 048
     Dates: start: 20080101, end: 20081028

REACTIONS (5)
  - CYTOLYTIC HEPATITIS [None]
  - HEPATITIS FULMINANT [None]
  - JAUNDICE [None]
  - OEDEMA PERIPHERAL [None]
  - RESPIRATORY ARREST [None]
